FAERS Safety Report 8313671-4 (Version None)
Quarter: 2012Q2

REPORT INFORMATION
  Report Type: 
  Country: None (occurrence: None)
  Receive Date: 20120426
  Receipt Date: 20120419
  Transmission Date: 20120825
  Serious: Yes (Death, Hospitalization)
  Sender: FDA-Public Use
  Company Number: IT-ELI_LILLY_AND_COMPANY-IT201204004165

PATIENT
  Sex: Male

DRUGS (12)
  1. EFFIENT [Suspect]
     Indication: ACUTE MYOCARDIAL INFARCTION
     Dosage: UNK, UNKNOWN
     Route: 048
     Dates: start: 20120328
  2. ASPIRIN [Concomitant]
     Dosage: 100 MG, QD
     Route: 048
  3. WARFARIN SODIUM [Concomitant]
     Dosage: UNK
     Dates: end: 20120409
  4. FUROSEMIDE [Concomitant]
     Dosage: 40 MG, BID
     Route: 042
  5. RAMIPRIL [Concomitant]
     Dosage: 2.5 MG, QD
     Route: 048
  6. KONAKION [Concomitant]
     Dosage: UNK
     Dates: start: 20120409
  7. LANSOPRAZOLE [Concomitant]
     Dosage: 30 MG, BID
     Route: 048
  8. EFFIENT [Suspect]
     Dosage: 10 MG, QD
     Route: 048
     Dates: end: 20120410
  9. SIMVASTATIN [Concomitant]
     Dosage: 20 MG, QD
     Route: 048
  10. PIPERACILLIN AND TAZOBACTAM [Concomitant]
     Dosage: 4.5 MG, BID
     Route: 042
  11. CIPROFLOXACIN [Concomitant]
     Dosage: 500 MG, BID
     Route: 048
  12. METOPROLOL TARTRATE [Concomitant]
     Dosage: 50 MG, BID
     Route: 048

REACTIONS (5)
  - LARGE INTESTINAL ULCER HAEMORRHAGE [None]
  - VENTRICULAR FIBRILLATION [None]
  - GASTROINTESTINAL HAEMORRHAGE [None]
  - GASTROINTESTINAL ANGIODYSPLASIA HAEMORRHAGIC [None]
  - CARDIO-RESPIRATORY ARREST [None]
